FAERS Safety Report 21209703 (Version 1)
Quarter: 2022Q3

REPORT INFORMATION
  Report Type: Spontaneous
  Country: US (occurrence: None)
  Receive Date: 20220813
  Receipt Date: 20220813
  Transmission Date: 20221026
  Serious: No
  Sender: FDA-Public Use
  Company Number: 2022A275902

PATIENT
  Age: 80 Year
  Sex: Female
  Weight: 59.9 kg

DRUGS (2)
  1. DALIRESP [Suspect]
     Active Substance: ROFLUMILAST
     Indication: Chronic obstructive pulmonary disease
     Route: 048
     Dates: start: 20220612, end: 20220714
  2. BUDESONIDE\FORMOTEROL\GLYCOPYRRONIUM [Suspect]
     Active Substance: BUDESONIDE\FORMOTEROL\GLYCOPYRRONIUM
     Indication: Chronic obstructive pulmonary disease
     Dosage: 160/9/4.8 MCG
     Route: 055

REACTIONS (11)
  - Weight decreased [Recovered/Resolved]
  - Asthenia [Recovered/Resolved]
  - Eating disorder [Recovering/Resolving]
  - Secretion discharge [Recovered/Resolved]
  - Pollakiuria [Not Recovered/Not Resolved]
  - Hypersomnia [Recovered/Resolved]
  - Blood glucose increased [Unknown]
  - Urinary tract infection [Unknown]
  - Amnesia [Not Recovered/Not Resolved]
  - Joint swelling [Not Recovered/Not Resolved]
  - Intentional dose omission [Unknown]

NARRATIVE: CASE EVENT DATE: 20220101
